FAERS Safety Report 22637320 (Version 1)
Quarter: 2023Q2

REPORT INFORMATION
  Report Type: Spontaneous
  Country: FR (occurrence: FR)
  Receive Date: 20230626
  Receipt Date: 20230626
  Transmission Date: 20230721
  Serious: Yes (Life-Threatening, Other)
  Sender: FDA-Public Use
  Company Number: FR-AFSSAPS-ST2023000715

PATIENT
  Age: 64 Year
  Sex: Female
  Weight: 85 kg

DRUGS (2)
  1. AMOXICILLIN [Suspect]
     Active Substance: AMOXICILLIN
     Indication: Allergy test
     Dosage: UNK
     Route: 023
     Dates: start: 20220609, end: 20220609
  2. CEFUROXIME [Suspect]
     Active Substance: CEFUROXIME
     Indication: Allergy test
     Dosage: 715 MILLIGRAM
     Route: 048
     Dates: start: 20220609, end: 20220609

REACTIONS (2)
  - Anaphylactic shock [Recovered/Resolved]
  - Allergy test positive [Recovered/Resolved]

NARRATIVE: CASE EVENT DATE: 20220609
